FAERS Safety Report 9199422 (Version 1)
Quarter: 2013Q1

REPORT INFORMATION
  Report Type: Spontaneous
  Country: US (occurrence: US)
  Receive Date: 20130329
  Receipt Date: 20130329
  Transmission Date: 20140127
  Serious: No
  Sender: FDA-Public Use
  Company Number: US-PFIZER INC-2013100512

PATIENT
  Sex: Female

DRUGS (2)
  1. CHANTIX [Suspect]
     Dosage: 0.5 MG, 1X/DAY (FOR ONE WEEK)
  2. CHANTIX [Suspect]
     Dosage: 0.5 MG, 2X/DAY

REACTIONS (1)
  - Drug ineffective [Unknown]
